FAERS Safety Report 8348337-8 (Version None)
Quarter: 2012Q2

REPORT INFORMATION
  Report Type: 
  Country: None (occurrence: None)
  Receive Date: 20120509
  Receipt Date: 20120507
  Transmission Date: 20120825
  Serious: Yes (Hospitalization, Other)
  Sender: FDA-Public Use
  Company Number: US-PFIZER INC-2012027742

PATIENT
  Sex: Male
  Weight: 78.458 kg

DRUGS (1)
  1. LYRICA [Suspect]
     Dosage: 100 MG, 2X/DAY
     Route: 048
     Dates: start: 20020101

REACTIONS (7)
  - ARTHRITIS INFECTIVE [None]
  - ANKLE FRACTURE [None]
  - FALL [None]
  - GASTROINTESTINAL TUBE INSERTION [None]
  - PATIENT-DEVICE INCOMPATIBILITY [None]
  - ARTERIAL OCCLUSIVE DISEASE [None]
  - WEIGHT DECREASED [None]
